FAERS Safety Report 7733356-2 (Version None)
Quarter: 2011Q3

REPORT INFORMATION
  Report Type: 
  Country: None (occurrence: None)
  Receive Date: 20110907
  Receipt Date: 20110829
  Transmission Date: 20111222
  Serious: Yes (Other)
  Sender: FDA-Public Use
  Company Number: US-BAYER-2011-080614

PATIENT
  Sex: Female

DRUGS (2)
  1. YASMIN [Suspect]
     Dosage: UNK
     Dates: start: 20060901, end: 20080701
  2. DROSPIRENONE AND ETHINYL ESTRADIOL [Suspect]
     Dosage: UNK
     Dates: start: 20080701, end: 20090901

REACTIONS (6)
  - PAIN [None]
  - ANXIETY [None]
  - INJURY [None]
  - EMOTIONAL DISTRESS [None]
  - GENERAL PHYSICAL HEALTH DETERIORATION [None]
  - CHOLELITHIASIS [None]
